FAERS Safety Report 9776383 (Version 3)
Quarter: 2014Q1

REPORT INFORMATION
  Report Type: Spontaneous
  Country: IT (occurrence: IT)
  Receive Date: 20131220
  Receipt Date: 20140306
  Transmission Date: 20141002
  Serious: Yes (Hospitalization)
  Sender: FDA-Public Use
  Company Number: IT-MYLANLABS-113AS20130475

PATIENT
  Age: 70 Year
  Sex: Female
  Weight: 0 kg

DRUGS (5)
  1. GABAPENTIN [Suspect]
     Indication: SUICIDE ATTEMPT
     Dosage: 14 DF TOTAL
     Route: 048
     Dates: start: 20131108, end: 20131108
  2. RISEDRONATE SODIUM [Suspect]
     Indication: SUICIDE ATTEMPT
     Dosage: 3 DF TOTAL
     Route: 048
     Dates: start: 20131108, end: 20131108
  3. ACETAMOL /00020001/ [Suspect]
     Indication: SUICIDE ATTEMPT
     Dosage: 4 DF TOTAL
     Route: 048
     Dates: start: 20131108, end: 20131108
  4. PALEXIA [Suspect]
     Indication: SUICIDE ATTEMPT
     Dosage: 9 DF TOTAL
     Route: 048
     Dates: start: 20131108, end: 20131108
  5. PATROL [Suspect]
     Indication: SUICIDE ATTEMPT
     Dosage: 7 DF TOTAL
     Route: 048
     Dates: start: 20131108, end: 20131108

REACTIONS (4)
  - Intentional overdose [Recovered/Resolved]
  - Drug abuse [Recovered/Resolved]
  - Suicide attempt [Recovered/Resolved]
  - Confusional state [Recovered/Resolved]
